FAERS Safety Report 25023246 (Version 1)
Quarter: 2025Q1

REPORT INFORMATION
  Report Type: Spontaneous
  Country: FR (occurrence: FR)
  Receive Date: 20250228
  Receipt Date: 20250228
  Transmission Date: 20250408
  Serious: Yes (Other)
  Sender: RANBAXY
  Company Number: FR-SUN PHARMACEUTICAL INDUSTRIES LTD-2025RR-497134

PATIENT
  Sex: Female
  Weight: 4.045 kg

DRUGS (1)
  1. QUETIAPINE [Suspect]
     Active Substance: QUETIAPINE
     Indication: Affective disorder
     Route: 064
     Dates: start: 20240501, end: 20240801

REACTIONS (1)
  - Foetal macrosomia [Recovered/Resolved]

NARRATIVE: CASE EVENT DATE: 20240801
